FAERS Safety Report 24062525 (Version 1)
Quarter: 2024Q3

REPORT INFORMATION
  Report Type: Report from Study
  Country: SG (occurrence: SG)
  Receive Date: 20240708
  Receipt Date: 20240708
  Transmission Date: 20241016
  Serious: Yes (Hospitalization)
  Sender: EISAI
  Company Number: SG-Eisai-EC-2024-169617

PATIENT
  Age: 67 Year
  Sex: Female

DRUGS (3)
  1. LENVATINIB [Suspect]
     Active Substance: LENVATINIB
     Indication: Hormone refractory breast cancer
     Route: 048
     Dates: start: 20240614
  2. PEMBROLIZUMAB [Suspect]
     Active Substance: PEMBROLIZUMAB
     Indication: Hormone refractory breast cancer
     Route: 042
     Dates: start: 20240628
  3. LETROZOLE [Suspect]
     Active Substance: LETROZOLE
     Indication: Hormone refractory breast cancer
     Route: 048
     Dates: start: 20240614

REACTIONS (1)
  - Chest pain [Recovering/Resolving]

NARRATIVE: CASE EVENT DATE: 20240628
